FAERS Safety Report 6240733-8 (Version None)
Quarter: 2009Q2

REPORT INFORMATION
  Report Type: 
  Country: None (occurrence: None)
  Receive Date: 20090623
  Receipt Date: 20090302
  Transmission Date: 20091009
  Serious: No
  Sender: FDA-Public Use
  Company Number: US-ASTRAZENECA-2009UW05724

PATIENT
  Sex: Male

DRUGS (1)
  1. PULMICORT RESPULES [Suspect]
     Route: 055
     Dates: start: 20090301, end: 20090301

REACTIONS (3)
  - ABDOMINAL DISCOMFORT [None]
  - ACCIDENTAL EXPOSURE [None]
  - VOMITING [None]
